FAERS Safety Report 7973335-3 (Version None)
Quarter: 2011Q4

REPORT INFORMATION
  Report Type: 
  Country: None (occurrence: None)
  Receive Date: 20111213
  Receipt Date: 20110519
  Transmission Date: 20120403
  Serious: Yes (Other)
  Sender: FDA-Public Use
  Company Number: US-AMGEN-USASP2011018461

PATIENT
  Age: 87 Year
  Sex: Male
  Weight: 74.376 kg

DRUGS (9)
  1. ARANESP [Suspect]
     Dosage: 300 A?G, QWK
     Dates: start: 20100801
  2. LORAZEPAM [Concomitant]
  3. LEVOTHYROXINE SODIUM [Concomitant]
  4. MELATONIN [Concomitant]
  5. OMEPRAZOLE [Concomitant]
  6. ARANESP [Suspect]
     Indication: ANAEMIA OF MALIGNANT DISEASE
     Dosage: 300 A?G, QWK
     Dates: start: 20100801
  7. RITUXAN [Concomitant]
  8. ACETAMINOPHEN [Concomitant]
  9. FINASTERIDE [Concomitant]

REACTIONS (1)
  - HAEMOGLOBIN DECREASED [None]
